FAERS Safety Report 6195565-6 (Version None)
Quarter: 2009Q2

REPORT INFORMATION
  Report Type: 
  Country: None (occurrence: None)
  Receive Date: 20090519
  Receipt Date: 20090512
  Transmission Date: 20091009
  Serious: Yes (Other)
  Sender: FDA-Public Use
  Company Number: PHHY2009GB16669

PATIENT
  Sex: Female

DRUGS (1)
  1. DICLOFENAC [Suspect]
     Dosage: 1 OR 2, 25 MG TAB BID
     Route: 048

REACTIONS (2)
  - HAEMORRHAGE [None]
  - OCULAR HYPERAEMIA [None]
